FAERS Safety Report 9297493 (Version 1)
Quarter: 2013Q2

REPORT INFORMATION
  Report Type: Spontaneous
  Country: US (occurrence: US)
  Receive Date: 20130520
  Receipt Date: 20130520
  Transmission Date: 20140414
  Serious: Yes (Other)
  Sender: FDA-Public Use
  Company Number: US-SANOFI-AVENTIS-2013SA049152

PATIENT
  Age: 57 Year
  Sex: Female

DRUGS (1)
  1. LANTUS [Suspect]
     Dosage: DOSE:30 UNIT(S)
     Dates: start: 2006

REACTIONS (6)
  - Cardiac operation [Unknown]
  - Depression [Unknown]
  - Pain [Unknown]
  - Syncope [Unknown]
  - Blood glucose increased [Unknown]
  - Back injury [Unknown]
